FAERS Safety Report 5109862-6 (Version None)
Quarter: 2006Q3

REPORT INFORMATION
  Report Type: 
  Country: None (occurrence: None)
  Receive Date: 20060918
  Receipt Date: 20060918
  Transmission Date: 20061208
  Serious: Yes (Disabling, Other)
  Sender: FDA-Public Use
  Company Number: None

PATIENT
  Sex: Male
  Weight: 97.5234 kg

DRUGS (2)
  1. ERBITUX [Suspect]
     Indication: COLON CANCER
     Dosage: IV DRIP
     Route: 041
     Dates: start: 20060914, end: 20060914
  2. ERBITUX [Suspect]
     Indication: METASTASES TO LUNG
     Dosage: IV DRIP
     Route: 041
     Dates: start: 20060914, end: 20060914

REACTIONS (5)
  - CONVULSION [None]
  - LOSS OF CONSCIOUSNESS [None]
  - PRURITUS [None]
  - RASH MACULAR [None]
  - URTICARIA [None]
